FAERS Safety Report 9861323 (Version 2)
Quarter: 2014Q1

REPORT INFORMATION
  Report Type: Spontaneous
  Country: BR (occurrence: BR)
  Receive Date: 20140202
  Receipt Date: 20140202
  Transmission Date: 20141002
  Serious: No
  Sender: FDA-Public Use
  Company Number: BR-ALLERGAN-1304782US

PATIENT
  Sex: Female

DRUGS (3)
  1. BOTOX [Suspect]
     Indication: SKIN WRINKLING
     Dosage: UNK UNK, SINGLE
     Route: 030
     Dates: start: 20130322, end: 20130322
  2. BOTOX [Suspect]
     Indication: SKIN WRINKLING
  3. BOTOX [Suspect]
     Indication: SKIN WRINKLING

REACTIONS (6)
  - Wrong technique in drug usage process [Unknown]
  - Dizziness [Unknown]
  - Pyrexia [Unknown]
  - Malaise [Unknown]
  - Facial paresis [Recovering/Resolving]
  - Hypoaesthesia [Recovering/Resolving]
